FAERS Safety Report 9405111 (Version 1)
Quarter: 2013Q3

REPORT INFORMATION
  Report Type: Spontaneous
  Country: US (occurrence: US)
  Receive Date: 20130717
  Receipt Date: 20130717
  Transmission Date: 20140515
  Serious: Yes (Hospitalization)
  Sender: FDA-Public Use
  Company Number: US-BAYER-2013-086164

PATIENT
  Age: 49 Year
  Sex: Female

DRUGS (2)
  1. CLIMARA [Suspect]
     Indication: NAUSEA
     Dosage: 0.05 MG, QD
     Route: 062
     Dates: start: 20130705, end: 20130709
  2. CLIMARA [Suspect]
     Indication: MENOPAUSE

REACTIONS (2)
  - Pancreatitis [None]
  - Off label use [None]
